FAERS Safety Report 4344448-2 (Version None)
Quarter: 2004Q2

REPORT INFORMATION
  Report Type: 
  Country: None (occurrence: None)
  Receive Date: 20040422
  Receipt Date: 20031219
  Transmission Date: 20050107
  Serious: Yes (Death, Other)
  Sender: FDA-Public Use
  Company Number: FR-BRISTOL-MYERS SQUIBB COMPANY-12469383

PATIENT
  Age: 42 Year
  Sex: Male
  Weight: 62 kg

DRUGS (11)
  1. ATAZANAVIR [Suspect]
     Indication: HIV INFECTION
  2. SUSTIVA [Suspect]
     Indication: HIV INFECTION
  3. RITONAVIR [Suspect]
     Indication: HIV INFECTION
  4. PREVISCAN [Concomitant]
     Route: 048
     Dates: start: 19980101
  5. BACTRIM [Concomitant]
     Route: 048
     Dates: start: 19980101
  6. LASIX [Concomitant]
     Route: 048
     Dates: start: 20010101
  7. HYPERIUM [Concomitant]
     Indication: HYPERTENSION
     Route: 048
     Dates: start: 19990101
  8. RIVOTRIL [Concomitant]
     Route: 048
     Dates: start: 20030301
  9. TEGRETOL [Concomitant]
     Dosage: ^200^
     Dates: start: 20010101
  10. PARIET [Concomitant]
     Dosage: ^20^
  11. TRIMEPRAZINE TAB [Concomitant]

REACTIONS (6)
  - BLOOD CREATININE INCREASED [None]
  - BLOOD TRIGLYCERIDES INCREASED [None]
  - MYOCARDIAL INFARCTION [None]
  - PULMONARY EMBOLISM [None]
  - SUDDEN CARDIAC DEATH [None]
  - VENTRICULAR FIBRILLATION [None]
